FAERS Safety Report 13116068 (Version 2)
Quarter: 2017Q2

REPORT INFORMATION
  Report Type: Spontaneous
  Country: FR (occurrence: FR)
  Receive Date: 20170116
  Receipt Date: 20170412
  Transmission Date: 20170830
  Serious: Yes (Life-Threatening)
  Sender: FDA-Public Use
  Company Number: FR-ROCHE-1878934

PATIENT
  Age: 45 Year
  Sex: Male

DRUGS (10)
  1. NICOPATCH [Suspect]
     Active Substance: NICOTINE
     Indication: PRODUCT USED FOR UNKNOWN INDICATION
     Dosage: TRANSDERMAL PATCH OF 52.5 MG/30 CM2
     Route: 062
     Dates: start: 20161119, end: 20161224
  2. OFLOCET [Suspect]
     Active Substance: OFLOXACIN
     Indication: PRODUCT USED FOR UNKNOWN INDICATION
     Route: 065
     Dates: start: 20161201, end: 20161215
  3. PRINCI B [Suspect]
     Active Substance: PYRIDOXINE\THIAMINE
     Indication: PRODUCT USED FOR UNKNOWN INDICATION
     Route: 048
     Dates: start: 20161119, end: 20161224
  4. AOTAL [Suspect]
     Active Substance: ACAMPROSATE CALCIUM
     Indication: PRODUCT USED FOR UNKNOWN INDICATION
     Route: 048
     Dates: start: 20161201, end: 20161224
  5. VALIUM [Suspect]
     Active Substance: DIAZEPAM
     Route: 065
     Dates: start: 20161226, end: 20161228
  6. GARDENAL [Suspect]
     Active Substance: PHENOBARBITAL
     Indication: ALCOHOLIC SEIZURE
     Route: 048
     Dates: start: 20161119, end: 20161224
  7. VALIUM [Suspect]
     Active Substance: DIAZEPAM
     Indication: PRODUCT USED FOR UNKNOWN INDICATION
     Route: 065
     Dates: start: 20161201, end: 20161224
  8. INEXIUM [Suspect]
     Active Substance: ESOMEPRAZOLE
     Indication: PRODUCT USED FOR UNKNOWN INDICATION
     Route: 048
     Dates: start: 20161119, end: 20161224
  9. TOPALGIC LP [Suspect]
     Active Substance: TRAMADOL
     Indication: PRODUCT USED FOR UNKNOWN INDICATION
     Dosage: IF NECESSARY
     Route: 048
     Dates: start: 20161119, end: 20161224
  10. URBANYL [Concomitant]
     Active Substance: CLOBAZAM

REACTIONS (2)
  - Drug reaction with eosinophilia and systemic symptoms [Recovered/Resolved]
  - Hepatocellular injury [Recovered/Resolved]

NARRATIVE: CASE EVENT DATE: 20161215
